FAERS Safety Report 10718902 (Version 2)
Quarter: 2015Q1

REPORT INFORMATION
  Report Type: Spontaneous
  Country: US (occurrence: US)
  Receive Date: 20150119
  Receipt Date: 20150119
  Transmission Date: 20150721
  Serious: No
  Sender: FDA-Public Use
  Company Number: US-UNITED THERAPEUTICS-UNT-2014-006506

PATIENT
  Sex: Female
  Weight: 52.15 kg

DRUGS (3)
  1. ADCIRCA [Concomitant]
     Active Substance: TADALAFIL
     Indication: PRODUCT USED FOR UNKNOWN INDICATION
  2. LETAIRIS [Suspect]
     Active Substance: AMBRISENTAN
     Indication: PRODUCT USED FOR UNKNOWN INDICATION
     Dosage: 10 MG, QD
     Route: 065
     Dates: start: 20130405
  3. REMODULIN [Suspect]
     Active Substance: TREPROSTINIL
     Indication: COR PULMONALE CHRONIC
     Dosage: 0.20425 ?G/KG/MIN, CONTINUING
     Route: 041

REACTIONS (5)
  - Medication error [Unknown]
  - Ocular hyperaemia [Unknown]
  - Chemical eye injury [Unknown]
  - Headache [Unknown]
  - Eye irritation [Unknown]
